FAERS Safety Report 7335948-1 (Version None)
Quarter: 2011Q1

REPORT INFORMATION
  Report Type: 
  Country: None (occurrence: None)
  Receive Date: 20110307
  Receipt Date: 20110228
  Transmission Date: 20110831
  Serious: Yes (Disabling)
  Sender: FDA-Public Use
  Company Number: GB-PFIZER INC-2011026661

PATIENT
  Age: 84 Year
  Sex: Female

DRUGS (1)
  1. XALATAN [Suspect]
     Indication: GLAUCOMA
     Dosage: UNK, DAILY
     Dates: end: 20110208

REACTIONS (3)
  - VISION BLURRED [None]
  - EYE PAIN [None]
  - HYPERSENSITIVITY [None]
